FAERS Safety Report 9614394 (Version 1)
Quarter: 2013Q4

REPORT INFORMATION
  Report Type: Spontaneous
  Country: BR (occurrence: BR)
  Receive Date: 20131011
  Receipt Date: 20131011
  Transmission Date: 20140711
  Serious: Yes (Hospitalization)
  Sender: FDA-Public Use
  Company Number: BR-JNJFOC-20131003054

PATIENT
  Age: 57 Year
  Sex: Female
  Weight: 70 kg

DRUGS (1)
  1. REMICADE [Suspect]
     Indication: RHEUMATOID ARTHRITIS
     Route: 042
     Dates: start: 2010

REACTIONS (6)
  - Headache [Recovered/Resolved]
  - Gastrointestinal disorder [Recovered/Resolved]
  - Gastric disorder [Recovered/Resolved]
  - Chromaturia [Recovered/Resolved]
  - Influenza [Recovered/Resolved]
  - Asthenia [Not Recovered/Not Resolved]
